FAERS Safety Report 7525392-6 (Version None)
Quarter: 2011Q2

REPORT INFORMATION
  Report Type: 
  Country: None (occurrence: None)
  Receive Date: 20110606
  Receipt Date: 20110530
  Transmission Date: 20111010
  Serious: Yes (Hospitalization)
  Sender: FDA-Public Use
  Company Number: BR-ROCHE-760754

PATIENT
  Sex: Female
  Weight: 87.8 kg

DRUGS (5)
  1. BEVACIZUMAB [Suspect]
     Indication: RENAL CANCER
     Dosage: FREQUENCY : EVERY OTHER WEEK
     Route: 042
     Dates: start: 20090908, end: 20110201
  2. INTERFERON ALFA [Suspect]
     Indication: RENAL CANCER
     Dosage: DOSE : 6MU
     Route: 058
     Dates: start: 20090908, end: 20110213
  3. LOSARTAN POTASSIUM [Concomitant]
     Dates: start: 20100909
  4. ATENOLOL [Concomitant]
     Dates: start: 19800101
  5. LIPANOR [Concomitant]
     Dates: start: 20100923

REACTIONS (2)
  - RENAL FAILURE [None]
  - DIARRHOEA [None]
